FAERS Safety Report 26045257 (Version 1)
Quarter: 2025Q4

REPORT INFORMATION
  Report Type: Other
  Country: EU (occurrence: EU)
  Receive Date: 20251114
  Receipt Date: 20251114
  Transmission Date: 20260117
  Serious: Yes (Hospitalization)
  Sender: ZYDUS PHARM
  Company Number: None

PATIENT

DRUGS (1)
  1. OLANZAPINE [Suspect]
     Active Substance: OLANZAPINE
     Indication: Aggression
     Dosage: 10 MILLIGRAM, QD
     Route: 048
     Dates: start: 20250909, end: 20250923

REACTIONS (1)
  - Adult failure to thrive [Not Recovered/Not Resolved]

NARRATIVE: CASE EVENT DATE: 20250910
